FAERS Safety Report 9361557 (Version 1)
Quarter: 2013Q2

REPORT INFORMATION
  Report Type: Report from Study
  Country: US (occurrence: US)
  Receive Date: 20130621
  Receipt Date: 20130621
  Transmission Date: 20140414
  Serious: Yes (Other)
  Sender: FDA-Public Use
  Company Number: US-SANOFI-AVENTIS-2013SA061512

PATIENT
  Sex: Male

DRUGS (1)
  1. AUBAGIO [Suspect]
     Indication: MULTIPLE SCLEROSIS
     Dosage: PRODUCT STARTED 3 MONTHS AGO
     Route: 048

REACTIONS (5)
  - Blood urine present [Unknown]
  - Chromaturia [Unknown]
  - Micturition urgency [Unknown]
  - Drug dose omission [Unknown]
  - Malaise [Unknown]
